FAERS Safety Report 10998219 (Version 5)
Quarter: 2020Q2

REPORT INFORMATION
  Report Type: Spontaneous
  Country: US (occurrence: US)
  Receive Date: 20150408
  Receipt Date: 20200423
  Transmission Date: 20200713
  Serious: Yes (Hospitalization, Other)
  Sender: FDA-Public Use
  Company Number: US-PFIZER INC-2015119344

PATIENT
  Age: 44 Year
  Sex: Male
  Weight: 75 kg

DRUGS (23)
  1. RAPAMUNE [Suspect]
     Active Substance: SIROLIMUS
     Indication: PROPHYLAXIS AGAINST TRANSPLANT REJECTION
     Dosage: 1 MG, DAILY
     Route: 048
  2. BRILINTA [Concomitant]
     Active Substance: TICAGRELOR
     Dosage: 90 MG, UNK
  3. DIAZEPAM. [Concomitant]
     Active Substance: DIAZEPAM
     Dosage: 10 MG, 1X/DAY  AT NIGHT
     Route: 048
  4. TICAGRELOR. [Concomitant]
     Active Substance: TICAGRELOR
     Dosage: 90 MG, 2X/DAY
  5. RAPAMUNE [Suspect]
     Active Substance: SIROLIMUS
     Indication: IMMUNOSUPPRESSION
  6. TRESIBA [Concomitant]
     Active Substance: INSULIN DEGLUDEC
     Dosage: UNK
  7. NORCO [Concomitant]
     Active Substance: ACETAMINOPHEN\HYDROCODONE BITARTRATE
     Indication: PAIN
     Dosage: UNK, AS NEEDED [(10-325 MG PER TABLET) TAKE 1 TABLET BY MOUTH EVERY 6 (SIX) HOURS A NEEDED]
  8. CELLCEPT [Concomitant]
     Active Substance: MYCOPHENOLATE MOFETIL\MYCOPHENOLATE MOFETIL HYDROCHLORIDE
     Dosage: 750 MG, 2X/DAY
  9. CRESTOR [Concomitant]
     Active Substance: ROSUVASTATIN CALCIUM
     Dosage: 20 MG, UNK
  10. INSULIN LISPRO [Concomitant]
     Active Substance: INSULIN LISPRO
     Dosage: UNK (1 UNIT PER 12 GRAMS AS DIRECTED)
  11. RAPAMUNE [Suspect]
     Active Substance: SIROLIMUS
     Indication: ORGAN PRESERVATION
  12. ASPARIN [Concomitant]
     Active Substance: ASPIRIN DL-LYSINE
     Dosage: 81 MG, DAILY
  13. CELLCEPT [Concomitant]
     Active Substance: MYCOPHENOLATE MOFETIL\MYCOPHENOLATE MOFETIL HYDROCHLORIDE
     Indication: ORGAN PRESERVATION
     Dosage: 250 MG, 2X/DAY
     Route: 048
  14. PRINIVIL [Concomitant]
     Active Substance: LISINOPRIL
     Dosage: 5 MG, UNK
     Route: 048
  15. TOPROL XL [Concomitant]
     Active Substance: METOPROLOL SUCCINATE
     Dosage: 100 MG, UNK (100 MG 24 HR TABLET)
  16. NOVOLOG [Concomitant]
     Active Substance: INSULIN ASPART
     Dosage: SLIDING SCALE ONE UNIT FOR EVERY FIFTEEN
  17. ZESTRIL [Concomitant]
     Active Substance: LISINOPRIL
     Dosage: 5 MG, UNK
     Route: 048
  18. RAPAMUNE [Suspect]
     Active Substance: SIROLIMUS
     Indication: LIVER TRANSPLANT
     Dosage: 1 MG, 1X/DAY
     Route: 048
     Dates: start: 20050413
  19. CYMBALTA [Concomitant]
     Active Substance: DULOXETINE HYDROCHLORIDE
     Dosage: 30 MG, 2X/DAY
     Route: 048
  20. VALIUM [Concomitant]
     Active Substance: DIAZEPAM
     Dosage: 10 MG, DAILY
     Route: 048
  21. INSULIN GLARGINE [Concomitant]
     Active Substance: INSULIN GLARGINE
     Dosage: UNK (300 UNIT/ ML (1.5 ML) INSULIN PEN)
  22. NULYTELY [Concomitant]
     Active Substance: POLYETHYLENE GLYCOL 3350\POTASSIUM CHLORIDE\SODIUM BICARBONATE\SODIUM CHLORIDE
     Dosage: UNK (TAKE AS DIRECTED)
  23. TEMAZEPAM. [Concomitant]
     Active Substance: TEMAZEPAM
     Dosage: 30 MG, 1X/DAY  AT NIGHT

REACTIONS (5)
  - Diabetic coma [Recovered/Resolved]
  - Steroid diabetes [Not Recovered/Not Resolved]
  - Myocardial infarction [Unknown]
  - Product use in unapproved indication [Unknown]
  - Off label use [Unknown]

NARRATIVE: CASE EVENT DATE: 20050414
